FAERS Safety Report 6157575-4 (Version None)
Quarter: 2009Q2

REPORT INFORMATION
  Report Type: 
  Country: None (occurrence: None)
  Receive Date: 20090416
  Receipt Date: 20090410
  Transmission Date: 20091009
  Serious: Yes (Other)
  Sender: FDA-Public Use
  Company Number: US-ASTRAZENECA-2009UW09116

PATIENT
  Age: 51 Year
  Sex: Female
  Weight: 108.9 kg

DRUGS (3)
  1. CRESTOR [Suspect]
     Route: 048
  2. PREVACID [Concomitant]
  3. LISINOPRIL [Concomitant]

REACTIONS (2)
  - HEPATIC STEATOSIS [None]
  - HOT FLUSH [None]
